FAERS Safety Report 18454294 (Version 1)
Quarter: 2020Q4

REPORT INFORMATION
  Report Type: Spontaneous
  Country: JP (occurrence: JP)
  Receive Date: 20201102
  Receipt Date: 20201102
  Transmission Date: 20210114
  Serious: Yes (Hospitalization, Other)
  Sender: FDA-Public Use
  Company Number: JP-DSJP-DSJ-2020-131623

PATIENT
  Age: 65 Year
  Sex: Male

DRUGS (4)
  1. TAZOBACTAM SODIUM AND PIPERACILLIN SODIUM [Concomitant]
     Active Substance: PIPERACILLIN SODIUM\TAZOBACTAM SODIUM
     Indication: LIVER ABSCESS
     Dosage: 13.5G/DAY
     Route: 065
  2. CEFCAPENE PIVOXIL [Concomitant]
     Active Substance: CEFCAPENE PIVOXIL
     Dosage: 300MG/DAY
     Route: 065
  3. LOXONIN [Suspect]
     Active Substance: LOXOPROFEN SODIUM
     Indication: SPINAL STENOSIS
     Dosage: UNK
     Route: 065
  4. LIXIANA TABLETS [Suspect]
     Active Substance: EDOXABAN TOSYLATE
     Indication: THROMBOSIS
     Dosage: 30MG/DAY
     Route: 065

REACTIONS (3)
  - Back pain [Recovered/Resolved]
  - Diabetes mellitus [Recovering/Resolving]
  - Liver abscess [Recovered/Resolved]
